FAERS Safety Report 20430879 (Version 1)
Quarter: 2022Q1

REPORT INFORMATION
  Report Type: Other
  Country: US (occurrence: None)
  Receive Date: 20220204
  Receipt Date: 20220204
  Transmission Date: 20220424
  Serious: No
  Sender: FDA-Public Use
  Company Number: US-ROCHE-3012462

PATIENT
  Age: 56 Year
  Sex: Female
  Weight: 67.646 kg

DRUGS (9)
  1. OCREVUS [Suspect]
     Active Substance: OCRELIZUMAB
     Indication: Relapsing multiple sclerosis
     Dosage: LAST DOT: JUL/2021
     Route: 042
  2. COPAXONE [Concomitant]
     Active Substance: GLATIRAMER ACETATE
  3. ZYRTEC (UNITED STATES) [Concomitant]
  4. FLONASE [Concomitant]
     Active Substance: FLUTICASONE PROPIONATE
  5. DOXYCYCLINE [Concomitant]
     Active Substance: DOXYCYCLINE
  6. MOTRIN [Concomitant]
     Active Substance: IBUPROFEN
  7. TYLENOL [Concomitant]
     Active Substance: ACETAMINOPHEN
  8. BENZONATATE [Concomitant]
     Active Substance: BENZONATATE
  9. PREDNISONE [Concomitant]
     Active Substance: PREDNISONE

REACTIONS (3)
  - COVID-19 [Recovered/Resolved]
  - Dizziness [Recovered/Resolved]
  - Asthenia [Recovered/Resolved]

NARRATIVE: CASE EVENT DATE: 20220104
